FAERS Safety Report 4572846-0 (Version None)
Quarter: 2005Q1

REPORT INFORMATION
  Report Type: 
  Country: None (occurrence: None)
  Receive Date: 20050203
  Receipt Date: 20050119
  Transmission Date: 20050727
  Serious: No
  Sender: FDA-Public Use
  Company Number: 2005AC00111

PATIENT
  Age: 76 Year
  Sex: Female

DRUGS (6)
  1. NAROPIN [Suspect]
     Indication: POST PROCEDURAL PAIN
     Dosage: 2 MG/ML QID ED
     Route: 008
     Dates: start: 20050112, end: 20050112
  2. SUFENTANIL CITRATE [Suspect]
     Dosage: COMBINED WITH NAROPIN WITH THE FIRST TWO BOLUS INJECTIONS
     Dates: start: 20050112, end: 20050112
  3. ACETAMINOPHEN [Concomitant]
  4. DICLOFENAC [Concomitant]
  5. PANTOPRAZOLE [Concomitant]
  6. FRAXIPARINE [Concomitant]

REACTIONS (2)
  - NEUROMYOPATHY [None]
  - POST PROCEDURAL COMPLICATION [None]
